FAERS Safety Report 14715261 (Version 2)
Quarter: 2018Q4

REPORT INFORMATION
  Report Type: Spontaneous
  Country: DE (occurrence: DE)
  Receive Date: 20180404
  Receipt Date: 20181210
  Transmission Date: 20190204
  Serious: Yes (Death, Hospitalization, Other)
  Sender: FDA-Public Use
  Company Number: DE-MYLANLABS-2018M1020378

PATIENT
  Age: 7 Month
  Sex: Female

DRUGS (2)
  1. VALPROIC ACID. [Suspect]
     Active Substance: VALPROIC ACID
     Indication: STATUS EPILEPTICUS
     Dosage: UNK (FORM: INFUSION)
     Route: 042
  2. MIDAZOLAM [Concomitant]
     Active Substance: MIDAZOLAM HYDROCHLORIDE
     Indication: PARTIAL SEIZURES
     Dosage: UNK (FORM: INFUSION)
     Route: 042

REACTIONS (5)
  - Pneumonia [Fatal]
  - Acute hepatic failure [Fatal]
  - Transaminases increased [Fatal]
  - Vomiting [Fatal]
  - Liver disorder [Fatal]
